FAERS Safety Report 6434848-9 (Version None)
Quarter: 2009Q4

REPORT INFORMATION
  Report Type: 
  Country: None (occurrence: None)
  Receive Date: 20091109
  Receipt Date: 20091109
  Transmission Date: 20100525
  Serious: Yes (Other)
  Sender: FDA-Public Use
  Company Number: None

PATIENT
  Age: 62 Year
  Sex: Female
  Weight: 72.5755 kg

DRUGS (1)
  1. ACTONEL [Suspect]
     Indication: OSTEOPOROSIS
     Dosage: 35 MG ONCE A WEEK

REACTIONS (6)
  - EYE DISORDER [None]
  - EYE PAIN [None]
  - PHOTOPHOBIA [None]
  - RETINAL DISORDER [None]
  - RETINAL HAEMORRHAGE [None]
  - VISION BLURRED [None]
